FAERS Safety Report 11739542 (Version 1)
Quarter: 2015Q4

REPORT INFORMATION
  Report Type: Spontaneous
  Country: BR (occurrence: BR)
  Receive Date: 20151113
  Receipt Date: 20151113
  Transmission Date: 20160304
  Serious: Yes (Other)
  Sender: FDA-Public Use
  Company Number: ALCN2015BR006823

PATIENT
  Age: 69 Year
  Sex: Female

DRUGS (4)
  1. TIMOLOL MALEATE. [Concomitant]
     Active Substance: TIMOLOL MALEATE
     Indication: INTRAOCULAR PRESSURE INCREASED
     Dosage: UNK GTT, UNK
     Route: 047
     Dates: start: 20150929, end: 20151029
  2. VIGADEXA [Suspect]
     Active Substance: DEXAMETHASONE SODIUM PHOSPHATE\MOXIFLOXACIN HYDROCHLORIDE
     Indication: POSTOPERATIVE CARE
     Dosage: 1 GTT, Q4H
     Route: 047
     Dates: start: 20150928, end: 20151004
  3. CETROLAC [Concomitant]
     Indication: PRODUCT USED FOR UNKNOWN INDICATION
     Dosage: 1 GTT, Q8H
     Route: 047
     Dates: start: 20150929, end: 20151029
  4. VIGADEXA [Suspect]
     Active Substance: DEXAMETHASONE SODIUM PHOSPHATE\MOXIFLOXACIN HYDROCHLORIDE
     Dosage: 1 GTT, Q6H
     Route: 047
     Dates: start: 20151005, end: 20151007

REACTIONS (4)
  - Incorrect drug administration rate [Recovered/Resolved]
  - Drug ineffective [Recovered/Resolved]
  - Eye inflammation [Recovered/Resolved]
  - Anterior chamber inflammation [Recovered/Resolved]

NARRATIVE: CASE EVENT DATE: 20151006
